FAERS Safety Report 4557930-X (Version None)
Quarter: 2005Q1

REPORT INFORMATION
  Report Type: 
  Country: None (occurrence: None)
  Receive Date: 20050121
  Receipt Date: 20040203
  Transmission Date: 20050727
  Serious: Yes (Hospitalization)
  Sender: FDA-Public Use
  Company Number: US-BRISTOL-MYERS SQUIBB COMPANY-12500203

PATIENT
  Age: 39 Year
  Sex: Female

DRUGS (8)
  1. SERZONE [Suspect]
     Dosage: ON 5-30-01 DOSE INCREASED TO 200MG BID AND ON 10-30-01 INCREASED TO 300MG BID
     Route: 048
     Dates: end: 20020201
  2. NPH INSULIN [Concomitant]
  3. HUMALOG [Concomitant]
  4. REGLAN [Concomitant]
  5. ACYCLOVIR [Concomitant]
  6. AMBIEN [Concomitant]
  7. ZOFRAN [Concomitant]
  8. MULTIVITAMIN [Concomitant]

REACTIONS (3)
  - ARTHRITIS [None]
  - GASTRITIS [None]
  - LIVER FUNCTION TEST ABNORMAL [None]
